FAERS Safety Report 18116400 (Version 1)
Quarter: 2020Q3

REPORT INFORMATION
  Report Type: Spontaneous
  Country: US (occurrence: US)
  Receive Date: 20200805
  Receipt Date: 20200805
  Transmission Date: 20201103
  Serious: No
  Sender: FDA-Public Use
  Company Number: US-PERRIGO-19US013621

PATIENT
  Age: 84 Year
  Sex: Female
  Weight: 49.89 kg

DRUGS (3)
  1. MOTRIN IB [Suspect]
     Active Substance: IBUPROFEN
     Indication: OROPHARYNGEAL DISCOMFORT
     Dosage: 200 MG, BID
     Route: 048
     Dates: start: 20191102, end: 20191105
  2. MOTRIN IB [Suspect]
     Active Substance: IBUPROFEN
     Indication: EAR DISORDER
  3. LEVOTHYROXINE. [Concomitant]
     Active Substance: LEVOTHYROXINE
     Indication: PRODUCT USED FOR UNKNOWN INDICATION
     Dosage: 50 ML
     Route: 065

REACTIONS (1)
  - Dizziness [Recovered/Resolved]

NARRATIVE: CASE EVENT DATE: 20191105
